FAERS Safety Report 13348859 (Version 1)
Quarter: 2017Q1

REPORT INFORMATION
  Report Type: Spontaneous
  Country: US (occurrence: US)
  Receive Date: 20170320
  Receipt Date: 20170320
  Transmission Date: 20170428
  Serious: Yes (Other)
  Sender: FDA-Public Use
  Company Number: US-TEVA-714482USA

PATIENT
  Sex: Female

DRUGS (2)
  1. ESCITALOPRAM [Suspect]
     Active Substance: ESCITALOPRAM OXALATE
     Route: 065
  2. SUBSYS [Suspect]
     Active Substance: FENTANYL
     Route: 065

REACTIONS (3)
  - Procedural pain [Unknown]
  - Serotonin syndrome [Unknown]
  - Depression [Unknown]
